FAERS Safety Report 17582847 (Version 1)
Quarter: 2020Q1

REPORT INFORMATION
  Report Type: Report from Study
  Country: US (occurrence: US)
  Receive Date: 20200325
  Receipt Date: 20200325
  Transmission Date: 20200409
  Serious: Yes (Other)
  Sender: FDA-Public Use
  Company Number: US-INCYTE CORPORATION-2020IN001741

PATIENT

DRUGS (3)
  1. JAKAFI [Suspect]
     Active Substance: RUXOLITINIB
     Dosage: 20 MILLIGRAM, BID
     Route: 065
  2. JAKAFI [Suspect]
     Active Substance: RUXOLITINIB
     Indication: POLYCYTHAEMIA VERA
     Dosage: 25 MILLIGRAM, BID
     Route: 065
  3. JAKAFI [Suspect]
     Active Substance: RUXOLITINIB
     Dosage: 20 MILLIGRAM, QD
     Route: 048

REACTIONS (14)
  - Disturbance in attention [Unknown]
  - Abdominal pain [Unknown]
  - Decreased activity [Unknown]
  - Early satiety [Unknown]
  - Haematotoxicity [Unknown]
  - Hyperhidrosis [Unknown]
  - Fatigue [Unknown]
  - Bone pain [Unknown]
  - Abnormal loss of weight [Unknown]
  - Thrombocytopenia [Unknown]
  - Incorrect dose administered [Unknown]
  - Toxicity to various agents [Unknown]
  - Arthralgia [Unknown]
  - Night sweats [Unknown]
